FAERS Safety Report 5841553-6 (Version None)
Quarter: 2008Q3

REPORT INFORMATION
  Report Type: 
  Country: None (occurrence: None)
  Receive Date: 20080812
  Receipt Date: 20080804
  Transmission Date: 20090109
  Serious: Yes (Death)
  Sender: FDA-Public Use
  Company Number: US-ROCHE-579150

PATIENT
  Sex: Male
  Weight: 86.2 kg

DRUGS (1)
  1. CAPECITABINE [Suspect]
     Indication: COLORECTAL CANCER
     Dosage: DOSE: 2 WEEKS ON AND 1 WEEK OFF
     Route: 065
     Dates: start: 20080521

REACTIONS (1)
  - DEATH [None]
